FAERS Safety Report 11110197 (Version 1)
Quarter: 2015Q2

REPORT INFORMATION
  Report Type: Spontaneous
  Country: US (occurrence: None)
  Receive Date: 20150512
  Receipt Date: 20150512
  Transmission Date: 20150821
  Serious: No
  Sender: FDA-Public Use
  Company Number: None

PATIENT
  Age: 47 Year
  Sex: Female

DRUGS (1)
  1. COPAXONE [Suspect]
     Active Substance: GLATIRAMER ACETATE
     Indication: MULTIPLE SCLEROSIS
     Dosage: 40MG, 3X/WEEK, SQ
     Route: 058
     Dates: start: 20140701

REACTIONS (3)
  - Injection site reaction [None]
  - Scar [None]
  - Injection site swelling [None]

NARRATIVE: CASE EVENT DATE: 20150506
